FAERS Safety Report 10645670 (Version 2)
Quarter: 2014Q4

REPORT INFORMATION
  Report Type: Spontaneous
  Country: CH (occurrence: None)
  Receive Date: 20141209
  Receipt Date: 20141212
  Transmission Date: 20150529
  Serious: Yes (Hospitalization)
  Sender: FDA-Public Use
  Company Number: 20140773

PATIENT
  Age: 59 Year
  Sex: Male

DRUGS (1)
  1. FERINJECT [Suspect]
     Active Substance: FERRIC CARBOXYMALTOSE
     Indication: ANAEMIA
     Route: 041
     Dates: start: 20141104

REACTIONS (6)
  - Malaise [None]
  - Eye movement disorder [None]
  - Infusion related reaction [None]
  - Hyperhidrosis [None]
  - Hypotension [None]
  - Hypersensitivity [None]

NARRATIVE: CASE EVENT DATE: 20141104
